FAERS Safety Report 7535123-1 (Version None)
Quarter: 2011Q2

REPORT INFORMATION
  Report Type: 
  Country: None (occurrence: None)
  Receive Date: 20110609
  Receipt Date: 20110601
  Transmission Date: 20111010
  Serious: No
  Sender: FDA-Public Use
  Company Number: US-BIOGENIDEC-2011BI020673

PATIENT
  Sex: Female

DRUGS (4)
  1. MACRODANTIN [Concomitant]
     Indication: PREMEDICATION
     Dates: start: 20110501
  2. AVONEX [Concomitant]
     Indication: MULTIPLE SCLEROSIS
     Route: 030
     Dates: start: 19990901
  3. TYSABRI [Suspect]
     Indication: MULTIPLE SCLEROSIS
     Route: 042
     Dates: start: 20091214
  4. AMPYRA [Concomitant]
     Indication: GAIT DISTURBANCE
     Dates: start: 20100101

REACTIONS (2)
  - URINARY TRACT INFECTION [None]
  - DECREASED IMMUNE RESPONSIVENESS [None]
